FAERS Safety Report 6659496-7 (Version None)
Quarter: 2010Q1

REPORT INFORMATION
  Report Type: 
  Country: None (occurrence: None)
  Receive Date: 20100330
  Receipt Date: 20100318
  Transmission Date: 20100710
  Serious: Yes (Other)
  Sender: FDA-Public Use
  Company Number: GB-ELI_LILLY_AND_COMPANY-GB201003004751

PATIENT
  Age: 18 Year
  Sex: Male

DRUGS (2)
  1. PROZAC [Suspect]
     Indication: DEPRESSION
     Dosage: 40 MG, UNK
     Route: 048
     Dates: start: 20091001
  2. HALOPERIDOL [Concomitant]
     Indication: TIC
     Dosage: 500 UG, 3/D
     Dates: start: 20060101

REACTIONS (1)
  - QUALITY OF LIFE DECREASED [None]
